FAERS Safety Report 14552186 (Version 1)
Quarter: 2018Q1

REPORT INFORMATION
  Report Type: Other
  Country: US (occurrence: US)
  Receive Date: 20180220
  Receipt Date: 20180220
  Transmission Date: 20180509
  Serious: Yes (Hospitalization)
  Sender: FDA-Public Use
  Company Number: US-ACI HEALTHCARE LIMITED-2042287

PATIENT
  Age: 74 Year
  Sex: Female

DRUGS (18)
  1. LIDOCAINE. [Suspect]
     Active Substance: LIDOCAINE
     Route: 050
  2. LIOTHYRONINE [Concomitant]
     Active Substance: LIOTHYRONINE
     Route: 065
  3. PREGABALIN. [Concomitant]
     Active Substance: PREGABALIN
     Route: 065
  4. KETAMINE HYDROCHLORIDE. [Suspect]
     Active Substance: KETAMINE HYDROCHLORIDE
     Route: 050
  5. CLONIDINE. [Suspect]
     Active Substance: CLONIDINE
     Route: 050
  6. CONJUGATED ESTROGEN [Concomitant]
     Active Substance: ESTROGENS, CONJUGATED
     Route: 067
  7. LORATADINE. [Concomitant]
     Active Substance: LORATADINE
     Route: 065
  8. LORAZEPAM. [Concomitant]
     Active Substance: LORAZEPAM
     Route: 065
  9. OLOPATADINE. [Concomitant]
     Active Substance: OLOPATADINE
     Route: 065
  10. SERTRALINE [Concomitant]
     Active Substance: SERTRALINE HYDROCHLORIDE
     Route: 065
  11. GABAPENTIN. [Suspect]
     Active Substance: GABAPENTIN
     Indication: PRODUCT USE IN UNAPPROVED INDICATION
     Route: 050
  12. CALCIUM PLUS VITAMIN D [Concomitant]
     Active Substance: CALCIUM\VITAMIN D
     Route: 065
  13. DONEPEZIL. [Concomitant]
     Active Substance: DONEPEZIL
     Route: 065
  14. LEVOTHYROXINE. [Concomitant]
     Active Substance: LEVOTHYROXINE
     Route: 065
  15. OXYCODONE AND ACETAMINOPHEN [Concomitant]
     Active Substance: ACETAMINOPHEN\OXYCODONE HYDROCHLORIDE
     Route: 065
  16. RISPERIDONE. [Concomitant]
     Active Substance: RISPERIDONE
     Route: 065
  17. KETOPROFEN. [Suspect]
     Active Substance: KETOPROFEN
     Route: 050
  18. NAPROXEN. [Concomitant]
     Active Substance: NAPROXEN
     Route: 065

REACTIONS (6)
  - Product use in unapproved indication [Unknown]
  - Mental status changes [Recovering/Resolving]
  - Delirium [Recovered/Resolved]
  - Homicidal ideation [Recovering/Resolving]
  - Suicidal ideation [Unknown]
  - Attention deficit/hyperactivity disorder [Recovering/Resolving]
